FAERS Safety Report 13964918 (Version 1)
Quarter: 2017Q3

REPORT INFORMATION
  Report Type: Spontaneous
  Country: US (occurrence: US)
  Receive Date: 20170913
  Receipt Date: 20170913
  Transmission Date: 20171128
  Serious: No
  Sender: FDA-Public Use
  Company Number: US-JNJFOC-20170713836

PATIENT
  Age: 70 Year
  Sex: Male

DRUGS (5)
  1. CASODEX [Concomitant]
     Active Substance: BICALUTAMIDE
     Route: 065
  2. XGEVA [Concomitant]
     Active Substance: DENOSUMAB
     Route: 065
     Dates: start: 20170627
  3. ZYTIGA [Suspect]
     Active Substance: ABIRATERONE ACETATE
     Indication: PROSTATE CANCER
     Route: 048
     Dates: start: 201706
  4. LUPRON [Concomitant]
     Active Substance: LEUPROLIDE ACETATE
     Route: 065
  5. PREDNISONE. [Concomitant]
     Active Substance: PREDNISONE
     Route: 065

REACTIONS (4)
  - Pathological fracture [Unknown]
  - Back pain [Not Recovered/Not Resolved]
  - Dyspepsia [Unknown]
  - Urinary incontinence [Unknown]

NARRATIVE: CASE EVENT DATE: 201706
